FAERS Safety Report 5135027-8 (Version None)
Quarter: 2006Q4

REPORT INFORMATION
  Report Type: 
  Country: None (occurrence: None)
  Receive Date: 20061025
  Receipt Date: 20060831
  Transmission Date: 20070319
  Serious: No
  Sender: FDA-Public Use
  Company Number: US-MERCK-0608USA07099B1

PATIENT
  Sex: Male
  Weight: 3 kg

DRUGS (1)
  1. COZAAR [Suspect]
     Indication: HYPERTENSION

REACTIONS (5)
  - DRUG EXPOSURE DURING PREGNANCY [None]
  - LABOUR INDUCTION [None]
  - OLIGOHYDRAMNIOS [None]
  - RENAL FAILURE [None]
  - VENA CAVA THROMBOSIS [None]
